FAERS Safety Report 6784792-2 (Version None)
Quarter: 2010Q2

REPORT INFORMATION
  Report Type: 
  Country: None (occurrence: None)
  Receive Date: 20100622
  Receipt Date: 20100616
  Transmission Date: 20101027
  Serious: Yes (Death, Hospitalization)
  Sender: FDA-Public Use
  Company Number: PHHY2010US26045

PATIENT
  Sex: Male

DRUGS (2)
  1. GLEEVEC [Suspect]
     Dosage: 600 MG DAILY
     Route: 048
     Dates: start: 20071109, end: 20100204
  2. GLEEVEC [Suspect]
     Dosage: 400 MG DAILY
     Route: 048
     Dates: start: 20091201, end: 20100320

REACTIONS (6)
  - ABDOMINAL DISTENSION [None]
  - ABDOMINAL PAIN UPPER [None]
  - LOCALISED INTRAABDOMINAL FLUID COLLECTION [None]
  - PARACENTESIS [None]
  - PERITONEAL HAEMORRHAGE [None]
  - RENAL FAILURE ACUTE [None]
